FAERS Safety Report 19838846 (Version 1)
Quarter: 2021Q3

REPORT INFORMATION
  Report Type: Spontaneous
  Country: US (occurrence: US)
  Receive Date: 20210915
  Receipt Date: 20210915
  Transmission Date: 20211014
  Serious: Yes (Other)
  Sender: FDA-Public Use
  Company Number: None

PATIENT
  Age: 60 Year
  Sex: Female

DRUGS (1)
  1. REGEN?COV [Suspect]
     Active Substance: CASIRIVIMAB\IMDEVIMAB
     Indication: SARS-COV-2 TEST POSITIVE
     Dosage: DOSE OR AMOUNT: 600 MG?600MG/50 ML
     Route: 042
     Dates: start: 20210831, end: 20210831

REACTIONS (3)
  - Cough [None]
  - Chest discomfort [None]
  - Pruritus [None]

NARRATIVE: CASE EVENT DATE: 20210831
